FAERS Safety Report 6301742-3 (Version None)
Quarter: 2009Q3

REPORT INFORMATION
  Report Type: 
  Country: None (occurrence: None)
  Receive Date: 20090805
  Receipt Date: 20090720
  Transmission Date: 20100115
  Serious: Yes (Other)
  Sender: FDA-Public Use
  Company Number: ACO_00574_2009

PATIENT
  Sex: Male

DRUGS (1)
  1. SIRDALUD [Suspect]
     Indication: MUSCLE SPASMS
     Dosage: (2 MG ORAL)
     Route: 048
     Dates: start: 20090702, end: 20090703

REACTIONS (2)
  - ANGIOEDEMA [None]
  - LOCALISED OEDEMA [None]
